FAERS Safety Report 7720077-5 (Version None)
Quarter: 2011Q3

REPORT INFORMATION
  Report Type: 
  Country: None (occurrence: None)
  Receive Date: 20110824
  Receipt Date: 20110721
  Transmission Date: 20111222
  Serious: Yes (Hospitalization)
  Sender: FDA-Public Use
  Company Number: 2011-1334

PATIENT
  Sex: Male

DRUGS (1)
  1. SOMATULINE AUTOGEL (SOMATULINE SR) (LANREOTIDE) (LANREOTIDE ACETATE) [Suspect]
     Indication: PRODUCT USED FOR UNKNOWN INDICATION

REACTIONS (3)
  - INJECTION SITE INFECTION [None]
  - INJECTION SITE MASS [None]
  - INCORRECT PRODUCT STORAGE [None]
